FAERS Safety Report 6001971-2 (Version None)
Quarter: 2008Q4

REPORT INFORMATION
  Report Type: 
  Country: None (occurrence: None)
  Receive Date: 20081212
  Receipt Date: 20081202
  Transmission Date: 20090506
  Serious: No
  Sender: FDA-Public Use
  Company Number: US025136

PATIENT
  Sex: Female

DRUGS (3)
  1. FENTORA [Suspect]
     Indication: HEPATITIS C
     Dosage: 400 UG BUCCAL
     Route: 002
     Dates: start: 20070101
  2. FENTORA [Suspect]
     Indication: HEPATITIS C
     Dosage: 800 UG BUCCAL
     Route: 002
  3. MORPHINE [Concomitant]

REACTIONS (1)
  - DRUG PRESCRIBING ERROR [None]
